FAERS Safety Report 5039794-3 (Version None)
Quarter: 2006Q2

REPORT INFORMATION
  Report Type: 
  Country: None (occurrence: None)
  Receive Date: 20060601
  Receipt Date: 20060110
  Transmission Date: 20061013
  Serious: No
  Sender: FDA-Public Use
  Company Number: 2006PV006914

PATIENT
  Age: 53 Year
  Sex: Female
  Weight: 132.4503 kg

DRUGS (6)
  1. BYETTA [Suspect]
     Indication: DIABETES MELLITUS NON-INSULIN-DEPENDENT
     Dosage: SEE IMAGE
     Route: 058
     Dates: start: 20051209, end: 20060108
  2. BYETTA [Suspect]
     Indication: DIABETES MELLITUS NON-INSULIN-DEPENDENT
     Dosage: SEE IMAGE
     Route: 058
     Dates: start: 20060109
  3. GLYBURIDE [Concomitant]
  4. ACTOS [Concomitant]
  5. GLUCOSAMINE HYDROCHLORIDE/CHONDROITIN SULFATE [Concomitant]
  6. GLUCOSAMINE HYDROCHLORIDE/CHONDROITIN SULFATE [Concomitant]

REACTIONS (3)
  - INJECTION SITE HAEMORRHAGE [None]
  - INJECTION SITE PAIN [None]
  - INJECTION SITE RASH [None]
